FAERS Safety Report 15338322 (Version 1)
Quarter: 2018Q3

REPORT INFORMATION
  Report Type: Spontaneous
  Country: US (occurrence: US)
  Receive Date: 20180831
  Receipt Date: 20180831
  Transmission Date: 20181010
  Serious: Yes (Other)
  Sender: FDA-Public Use
  Company Number: US-PURDUE PHARMA-USA-2018-0144572

PATIENT
  Sex: Male

DRUGS (2)
  1. OXYCODONE HYDROCHLORIDE (SIMILAR TO NDA 22?272) [Suspect]
     Active Substance: OXYCODONE HYDROCHLORIDE
     Indication: PAIN
     Dosage: 30 MG, UNK
     Route: 048
  2. OXYCONTIN [Suspect]
     Active Substance: OXYCODONE HYDROCHLORIDE
     Indication: PAIN
     Dosage: 80 MG, Q6H
     Route: 048

REACTIONS (5)
  - Hypopituitarism [Unknown]
  - Radioactive iodine therapy [Not Recovered/Not Resolved]
  - Off label use [Recovered/Resolved]
  - Drug detoxification [Unknown]
  - Brain neoplasm [Unknown]
